FAERS Safety Report 18918432 (Version 23)
Quarter: 2023Q4

REPORT INFORMATION
  Report Type: Spontaneous
  Country: CA (occurrence: CA)
  Receive Date: 20210220
  Receipt Date: 20231026
  Transmission Date: 20240110
  Serious: Yes (Other)
  Sender: FDA-Public Use
  Company Number: CA-CELLTRION INC.-2020CA028469

PATIENT

DRUGS (23)
  1. INFLECTRA [Suspect]
     Active Substance: INFLIXIMAB-DYYB
     Indication: Crohn^s disease
     Dosage: 460 MG EVERY 6 WEEKS
     Route: 042
     Dates: start: 20201005, end: 20230308
  2. INFLECTRA [Suspect]
     Active Substance: INFLIXIMAB-DYYB
     Dosage: 460 MG EVERY 6 WEEKS
     Route: 042
     Dates: start: 20201118
  3. INFLECTRA [Suspect]
     Active Substance: INFLIXIMAB-DYYB
     Dosage: 460 MG EVERY 6 WEEKS
     Route: 042
     Dates: start: 20201230
  4. INFLECTRA [Suspect]
     Active Substance: INFLIXIMAB-DYYB
     Dosage: 460 MG EVERY 6 WEEKS
     Route: 042
     Dates: start: 20210211
  5. INFLECTRA [Suspect]
     Active Substance: INFLIXIMAB-DYYB
     Dosage: 460 MG EVERY 6 WEEKS
     Route: 042
     Dates: start: 20210323
  6. INFLECTRA [Suspect]
     Active Substance: INFLIXIMAB-DYYB
     Dosage: 460 MG EVERY 6 WEEKS
     Route: 042
     Dates: start: 20210506
  7. INFLECTRA [Suspect]
     Active Substance: INFLIXIMAB-DYYB
     Dosage: 460 MG EVERY 6 WEEKS
     Route: 042
     Dates: start: 20211026
  8. INFLECTRA [Suspect]
     Active Substance: INFLIXIMAB-DYYB
     Dosage: 460 MG EVERY 6 WEEKS
     Route: 042
     Dates: start: 20211201
  9. INFLECTRA [Suspect]
     Active Substance: INFLIXIMAB-DYYB
     Dosage: 460 MG EVERY 6 WEEKS
     Route: 042
     Dates: start: 20220111
  10. INFLECTRA [Suspect]
     Active Substance: INFLIXIMAB-DYYB
     Dosage: 460 MG EVERY 6 WEEKS
     Route: 042
     Dates: start: 20220224
  11. INFLECTRA [Suspect]
     Active Substance: INFLIXIMAB-DYYB
     Dosage: 460 MG EVERY 6 WEEKS
     Route: 042
     Dates: start: 20220405
  12. INFLECTRA [Suspect]
     Active Substance: INFLIXIMAB-DYYB
     Dosage: 460 MG EVERY 6 WEEKS
     Route: 042
     Dates: start: 20220519
  13. INFLECTRA [Suspect]
     Active Substance: INFLIXIMAB-DYYB
     Dosage: 460 MG EVERY 6 WEEKS
     Route: 042
     Dates: start: 20220630
  14. INFLECTRA [Suspect]
     Active Substance: INFLIXIMAB-DYYB
     Dosage: 460 MG EVERY 6 WEEKS
     Route: 042
     Dates: start: 20220812
  15. INFLECTRA [Suspect]
     Active Substance: INFLIXIMAB-DYYB
     Dosage: 460 MG EVERY 6 WEEKS
     Route: 042
     Dates: start: 20220923
  16. INFLECTRA [Suspect]
     Active Substance: INFLIXIMAB-DYYB
     Dosage: 460 MG EVERY 6 WEEKS
     Route: 042
     Dates: start: 20221216
  17. INFLECTRA [Suspect]
     Active Substance: INFLIXIMAB-DYYB
     Dosage: 460 MG EVERY 6 WEEKS
     Route: 042
     Dates: start: 20230127
  18. INFLECTRA [Suspect]
     Active Substance: INFLIXIMAB-DYYB
     Dosage: 460 MG EVERY 6 WEEKS
     Route: 042
     Dates: start: 20230308
  19. INFLECTRA [Suspect]
     Active Substance: INFLIXIMAB-DYYB
     Dosage: 2500 UG/KG, EVERY 6 WEEKS, 197.5MG (2.5MG/KG) AFTER 6 WEEKS
     Route: 042
     Dates: start: 20230421
  20. INFLECTRA [Suspect]
     Active Substance: INFLIXIMAB-DYYB
     Dosage: 2500 UG/KG, EVERY 6 WEEKS, 180 MG  (2.5MG/KG)EVERY 6 WEEKS
     Route: 042
     Dates: start: 20230602
  21. INFLECTRA [Suspect]
     Active Substance: INFLIXIMAB-DYYB
     Dosage: 175 MG (2.5MG/KG), Q6 WEEKS
     Route: 042
     Dates: start: 20230712
  22. INFLECTRA [Suspect]
     Active Substance: INFLIXIMAB-DYYB
     Dosage: 390 MG (5 MG/KG), EVERY 6 WEEKS
     Route: 042
     Dates: start: 20230825
  23. INFLECTRA [Suspect]
     Active Substance: INFLIXIMAB-DYYB
     Dosage: 7.5 MG/KG EVERY 6 WEEKS (600MG AFTER 6 WEEKS)
     Route: 042
     Dates: start: 20231006

REACTIONS (17)
  - Gastrointestinal bacterial infection [Unknown]
  - Condition aggravated [Recovering/Resolving]
  - Weight decreased [Unknown]
  - Weight increased [Recovered/Resolved]
  - Drug level increased [Unknown]
  - Drug level below therapeutic [Not Recovered/Not Resolved]
  - Heart rate decreased [Unknown]
  - Blood pressure systolic increased [Unknown]
  - Fungal infection [Recovered/Resolved]
  - Bacterial infection [Recovered/Resolved]
  - Anal fistula [Recovered/Resolved]
  - Arthralgia [Recovered/Resolved]
  - Anal fissure [Recovered/Resolved]
  - Off label use [Unknown]
  - Off label use [Unknown]
  - Off label use [Unknown]
  - Intentional product use issue [Unknown]

NARRATIVE: CASE EVENT DATE: 20200101
